FAERS Safety Report 6619698-2 (Version None)
Quarter: 2010Q1

REPORT INFORMATION
  Report Type: 
  Country: None (occurrence: None)
  Receive Date: 20100303
  Receipt Date: 20100218
  Transmission Date: 20100710
  Serious: Yes (Hospitalization)
  Sender: FDA-Public Use
  Company Number: 007298

PATIENT
  Sex: Female

DRUGS (1)
  1. CIMZIA [Suspect]
     Dosage: 200 MG 1X/2 WEEKS SUBCUTANUOUS
     Route: 058
     Dates: start: 20080903

REACTIONS (2)
  - GASTROINTESTINAL INFLAMMATION [None]
  - INTESTINAL OBSTRUCTION [None]
